FAERS Safety Report 8050507-3 (Version None)
Quarter: 2012Q1

REPORT INFORMATION
  Report Type: 
  Country: None (occurrence: None)
  Receive Date: 20120117
  Receipt Date: 20120105
  Transmission Date: 20120608
  Serious: Yes (Hospitalization, Other)
  Sender: FDA-Public Use
  Company Number: BR-ASTRAZENECA-2010SE28341

PATIENT
  Age: 79 Year
  Sex: Female

DRUGS (10)
  1. SIMVASTATIN [Concomitant]
     Route: 048
     Dates: start: 20050101, end: 20100201
  2. ATACAND HCT [Suspect]
     Indication: HYPERTENSION
     Dosage: 16/12.5 MGS OD
     Route: 048
     Dates: start: 20060101
  3. CRESTOR [Suspect]
     Route: 048
     Dates: start: 20100201
  4. ASA PEDIATRIC [Concomitant]
     Route: 048
  5. BENERVA [Concomitant]
     Route: 048
  6. EVISTA [Concomitant]
     Route: 048
  7. OMEPRAZOLE [Suspect]
     Dosage: OD
     Route: 048
     Dates: start: 20050101
  8. TAPAZOL [Concomitant]
     Route: 048
     Dates: start: 20070101
  9. ATENOLOL [Suspect]
     Route: 048
     Dates: start: 20080101
  10. FLUOXETINE [Concomitant]
     Route: 048
     Dates: start: 20050101

REACTIONS (8)
  - INFLUENZA [None]
  - HYPERTENSION [None]
  - DIZZINESS [None]
  - CHEST PAIN [None]
  - VISION BLURRED [None]
  - HYPERHIDROSIS [None]
  - COUGH [None]
  - NAUSEA [None]
